FAERS Safety Report 17094208 (Version 1)
Quarter: 2019Q4

REPORT INFORMATION
  Report Type: Spontaneous
  Country: US (occurrence: US)
  Receive Date: 20191102
  Receipt Date: 20191102
  Transmission Date: 20200122
  Serious: No
  Sender: FDA-Public Use
  Company Number: None

PATIENT
  Age: 62 Year
  Sex: Male

DRUGS (1)
  1. TACROLIMUS CAP 1 MG [Suspect]
     Active Substance: TACROLIMUS
     Route: 048
     Dates: start: 201711

REACTIONS (3)
  - Vision blurred [None]
  - Headache [None]
  - Diarrhoea [None]

NARRATIVE: CASE EVENT DATE: 20191102
